FAERS Safety Report 24794044 (Version 1)
Quarter: 2024Q4

REPORT INFORMATION
  Report Type: Spontaneous
  Country: US (occurrence: US)
  Receive Date: 20241231
  Receipt Date: 20241231
  Transmission Date: 20250115
  Serious: Yes (Hospitalization)
  Sender: RISING PHARMACEUTICALS
  Company Number: US-RISINGPHARMA-US-2024RISLIT00515

PATIENT
  Age: 37 Year
  Sex: Male

DRUGS (2)
  1. PYRIDOSTIGMINE BROMIDE EXTENDED RELEASE [Suspect]
     Active Substance: PYRIDOSTIGMINE BROMIDE
     Indication: Myasthenia gravis
     Route: 042
  2. PYRIDOSTIGMINE BROMIDE EXTENDED RELEASE [Suspect]
     Active Substance: PYRIDOSTIGMINE BROMIDE
     Route: 065

REACTIONS (2)
  - Agitation [Unknown]
  - Drug level increased [Unknown]
